FAERS Safety Report 24910638 (Version 1)
Quarter: 2025Q1

REPORT INFORMATION
  Report Type: Spontaneous
  Country: US (occurrence: US)
  Receive Date: 20250131
  Receipt Date: 20250131
  Transmission Date: 20250408
  Serious: Yes (Other)
  Sender: REGENERON
  Company Number: US-REGENERON PHARMACEUTICALS, INC.-2025-023683

PATIENT
  Sex: Male

DRUGS (1)
  1. PRALUENT [Suspect]
     Active Substance: ALIROCUMAB
     Indication: Hypercholesterolaemia
     Dosage: 75 MG, Q2W
     Route: 058
     Dates: start: 202401

REACTIONS (6)
  - Deafness [Unknown]
  - Mental impairment [Unknown]
  - General physical health deterioration [Unknown]
  - Malaise [Unknown]
  - Injection site pain [Unknown]
  - Product preparation error [Unknown]
